FAERS Safety Report 6608798-9 (Version None)
Quarter: 2010Q1

REPORT INFORMATION
  Report Type: 
  Country: None (occurrence: None)
  Receive Date: 20100224
  Receipt Date: 20100224
  Transmission Date: 20100710
  Serious: No
  Sender: FDA-Public Use
  Company Number: None

PATIENT
  Age: 37 Year
  Sex: Male
  Weight: 81.6475 kg

DRUGS (14)
  1. CLOZAPINE [Suspect]
     Dosage: 850MG DAY PO SEVERAL YRS
     Route: 048
  2. ACTOS [Concomitant]
  3. LORAZEPAM [Concomitant]
  4. MOM [Concomitant]
  5. SEROQUEL [Concomitant]
  6. SULINDAC [Concomitant]
  7. BENZOYL PEROXIDE [Concomitant]
  8. LI CARB SR [Concomitant]
  9. MUTL/MINERAL [Concomitant]
  10. PALIPERIDONE [Concomitant]
  11. PREVACID [Concomitant]
  12. BENZTROPINE MESYLATE [Concomitant]
  13. TRILEPTAL [Concomitant]
  14. ARTANE [Concomitant]

REACTIONS (1)
  - NEUTROPENIA [None]
